FAERS Safety Report 4530421-8 (Version None)
Quarter: 2004Q4

REPORT INFORMATION
  Report Type: 
  Country: None (occurrence: None)
  Receive Date: 20041215
  Receipt Date: 20041206
  Transmission Date: 20050328
  Serious: Yes (Life-Threatening, Hospitalization)
  Sender: FDA-Public Use
  Company Number: 2004AC00933

PATIENT
  Age: 53 Year
  Sex: Male

DRUGS (3)
  1. QUETIAPINE [Suspect]
     Dosage: 25 MG DAILY PO
     Route: 048
  2. VENLAFAXINE HCL [Suspect]
     Dosage: 225 MG DAILY PO
     Route: 048
  3. ETHANOL [Suspect]

REACTIONS (21)
  - ALCOHOL WITHDRAWAL SYNDROME [None]
  - ALCOHOLISM [None]
  - AMNESIA [None]
  - BLOOD PRESSURE FLUCTUATION [None]
  - COMA [None]
  - DRUG INEFFECTIVE [None]
  - DRUG TOLERANCE DECREASED [None]
  - DRUG WITHDRAWAL SYNDROME [None]
  - ELECTROCARDIOGRAM QRS COMPLEX PROLONGED [None]
  - ELECTROCARDIOGRAM QT CORRECTED INTERVAL PROLONGED [None]
  - GRAND MAL CONVULSION [None]
  - HYPERTHERMIA [None]
  - INTRACRANIAL PRESSURE INCREASED [None]
  - LEUKOCYTOSIS [None]
  - MULTIPLE DRUG OVERDOSE [None]
  - NEUROLEPTIC MALIGNANT SYNDROME [None]
  - PNEUMONIA ASPIRATION [None]
  - RESPIRATORY DEPRESSION [None]
  - SEROTONIN SYNDROME [None]
  - SUICIDE ATTEMPT [None]
  - TREATMENT NONCOMPLIANCE [None]
